FAERS Safety Report 7401970-X (Version None)
Quarter: 2011Q2

REPORT INFORMATION
  Report Type: 
  Country: None (occurrence: None)
  Receive Date: 20110408
  Receipt Date: 20101021
  Transmission Date: 20111010
  Serious: Yes (Hospitalization)
  Sender: FDA-Public Use
  Company Number: US-BAYER-200941578NA

PATIENT
  Age: 46 Year
  Sex: Female
  Weight: 113.64 kg

DRUGS (8)
  1. YASMIN [Suspect]
     Indication: PRODUCT USED FOR UNKNOWN INDICATION
     Route: 048
     Dates: start: 20020401, end: 20020701
  2. WELLBUTRIN SR [Concomitant]
     Dosage: 150 MG, UNK
  3. ZESTRIL [Concomitant]
     Dosage: 10 MG, UNK
  4. CYTOMEL [Concomitant]
     Dosage: 50 MCG/24HR, UNK
  5. VIOXX [Concomitant]
     Dosage: 25 MG, UNK
  6. SYNTHROID [Concomitant]
     Dosage: 150 MCG/24HR, UNK
  7. YAZ [Suspect]
     Indication: PRODUCT USED FOR UNKNOWN INDICATION
     Route: 048
  8. LIPITOR [Concomitant]
     Dosage: 10 MG, UNK

REACTIONS (1)
  - DEEP VEIN THROMBOSIS [None]
